FAERS Safety Report 5531864-6 (Version None)
Quarter: 2007Q4

REPORT INFORMATION
  Report Type: 
  Country: None (occurrence: None)
  Receive Date: 20071203
  Receipt Date: 20071120
  Transmission Date: 20080405
  Serious: Yes (Hospitalization)
  Sender: FDA-Public Use
  Company Number: FR-ROCHE-532845

PATIENT
  Age: 38 Year
  Sex: Male
  Weight: 70 kg

DRUGS (8)
  1. PEG-INTERFERON A-2A (RO 25-8310) [Suspect]
     Route: 058
     Dates: start: 20070309
  2. EMTRIVA [Suspect]
     Dosage: ADDITIONAL INDICATION: HIV INFECTION
     Route: 048
     Dates: start: 20070306
  3. VIREAD [Suspect]
     Dosage: ADDTIONAL INDICATION: HIV INFECTION
     Route: 048
     Dates: start: 20050301
  4. OFLOCET [Suspect]
     Route: 065
     Dates: start: 20070424, end: 20070521
  5. RIMIFON [Suspect]
     Route: 048
     Dates: start: 20070424, end: 20070521
  6. ZIAGEN [Concomitant]
     Indication: HIV INFECTION
     Route: 048
     Dates: start: 20060916
  7. REYATAZ [Concomitant]
     Indication: HIV INFECTION
     Dates: start: 20050917
  8. NORVIR [Concomitant]
     Indication: HIV INFECTION
     Dates: start: 20050917

REACTIONS (2)
  - CONVULSION [None]
  - HYPOGLYCAEMIA [None]
